FAERS Safety Report 6039452-2 (Version None)
Quarter: 2009Q1

REPORT INFORMATION
  Report Type: 
  Country: None (occurrence: None)
  Receive Date: 20090114
  Receipt Date: 20081229
  Transmission Date: 20090719
  Serious: Yes (Life-Threatening, Hospitalization)
  Sender: FDA-Public Use
  Company Number: 8040797

PATIENT
  Sex: Male
  Weight: 58.5 kg

DRUGS (3)
  1. KEPPRA [Suspect]
     Indication: CONVULSION
     Dosage: 500 MG 2/D PO
     Route: 048
     Dates: start: 20080811, end: 20081119
  2. PROZAC [Concomitant]
  3. TEGRETOL [Concomitant]

REACTIONS (11)
  - CARDIAC DISORDER [None]
  - CONVULSION [None]
  - DIALYSIS [None]
  - DIARRHOEA [None]
  - HEMIPLEGIA [None]
  - LIVER INJURY [None]
  - LOSS OF CONSCIOUSNESS [None]
  - NERVE INJURY [None]
  - ORGAN FAILURE [None]
  - RENAL INJURY [None]
  - VOMITING [None]
